FAERS Safety Report 21056312 (Version 3)
Quarter: 2022Q3

REPORT INFORMATION
  Report Type: Spontaneous
  Country: US (occurrence: US)
  Receive Date: 20220708
  Receipt Date: 20220728
  Transmission Date: 20221026
  Serious: Yes (Other)
  Sender: FDA-Public Use
  Company Number: US-RECORDATI-2022002284

PATIENT

DRUGS (9)
  1. SIGNIFOR [Suspect]
     Active Substance: PASIREOTIDE DIASPARTATE
     Indication: Hypoglycaemia
     Dosage: 0.6 MILLIGRAM, BID
     Route: 058
     Dates: start: 20220621
  2. SIGNIFOR [Suspect]
     Active Substance: PASIREOTIDE DIASPARTATE
     Indication: Off label use
     Dosage: 0.6 MILLIGRAM, BID
     Route: 058
     Dates: start: 20220622
  3. SIGNIFOR [Suspect]
     Active Substance: PASIREOTIDE DIASPARTATE
     Dosage: 0.6 MILLIGRAM BID
     Route: 058
     Dates: start: 20220623
  4. SIGNIFOR [Suspect]
     Active Substance: PASIREOTIDE DIASPARTATE
     Dosage: 0.6 MILLIGRAM ONCE DAILY
     Route: 058
     Dates: start: 202206, end: 2022
  5. ZOFRAN [Suspect]
     Active Substance: ONDANSETRON HYDROCHLORIDE
     Indication: Nausea
     Dosage: UNK, PRN
     Dates: start: 202206
  6. GABAPENTIN [Concomitant]
     Active Substance: GABAPENTIN
     Indication: Product used for unknown indication
     Dosage: 300 MILLIGRAM, QID
  7. KLONOPIN [Concomitant]
     Active Substance: CLONAZEPAM
     Indication: Product used for unknown indication
     Dosage: 1 MILLIGRAM, QD (AT NIGHT)
  8. DILTIAZEM [Concomitant]
     Active Substance: DILTIAZEM
     Indication: Product used for unknown indication
     Dosage: 120 MILLIGRAM, QD (60 MG 2 AT NIGHT)
  9. CYANOCOBALAMIN [Concomitant]
     Active Substance: CYANOCOBALAMIN
     Indication: Product used for unknown indication

REACTIONS (16)
  - Chest discomfort [Recovered/Resolved]
  - Vomiting [Recovered/Resolved]
  - Abdominal pain upper [Not Recovered/Not Resolved]
  - Somnolence [Unknown]
  - Dysgeusia [Unknown]
  - Burning sensation [Unknown]
  - Blood glucose decreased [Unknown]
  - Nausea [Recovered/Resolved]
  - Dizziness [Unknown]
  - Blood glucose increased [Not Recovered/Not Resolved]
  - Blood glucose fluctuation [Unknown]
  - Off label use [Recovered/Resolved]
  - Incorrect drug administration rate [Recovered/Resolved]
  - Underdose [Recovered/Resolved]
  - Needle issue [Recovered/Resolved]
  - Drug effective for unapproved indication [Recovered/Resolved]

NARRATIVE: CASE EVENT DATE: 20220601
